FAERS Safety Report 20098914 (Version 2)
Quarter: 2022Q4

REPORT INFORMATION
  Report Type: Spontaneous
  Country: US (occurrence: US)
  Receive Date: 20211122
  Receipt Date: 20221004
  Transmission Date: 20230112
  Serious: Yes (Other)
  Sender: FDA-Public Use
  Company Number: US-BAUSCH-BL-2021-037966

PATIENT
  Age: 49 Year
  Sex: Male
  Weight: 90.800 kg

DRUGS (3)
  1. WELLBUTRIN XL [Suspect]
     Active Substance: BUPROPION HYDROCHLORIDE
     Indication: Schizophrenia
     Dosage: ON THE MEDICATION FOR 10 YEARS
     Route: 048
     Dates: start: 2011
  2. WELLBUTRIN XL [Suspect]
     Active Substance: BUPROPION HYDROCHLORIDE
     Indication: Product use in unapproved indication
  3. INVEGA TRINZA [Concomitant]
     Active Substance: PALIPERIDONE PALMITATE
     Indication: Product used for unknown indication

REACTIONS (8)
  - Seizure [Unknown]
  - Nightmare [Not Recovered/Not Resolved]
  - Pressure of speech [Unknown]
  - Arthralgia [Unknown]
  - Irritability [Unknown]
  - Insomnia [Not Recovered/Not Resolved]
  - Hallucination, visual [Unknown]
  - Product use in unapproved indication [Unknown]

NARRATIVE: CASE EVENT DATE: 20110101
